FAERS Safety Report 19799170 (Version 2)
Quarter: 2025Q4

REPORT INFORMATION
  Report Type: Report from Study
  Country: US (occurrence: US)
  Receive Date: 20210907
  Receipt Date: 20251005
  Transmission Date: 20260117
  Serious: No
  Sender: KYOWA
  Company Number: US-KYOWAKIRIN-2021BKK014918

PATIENT

DRUGS (1)
  1. BUROSUMAB [Suspect]
     Active Substance: BUROSUMAB
     Indication: Hereditary hypophosphataemic rickets
     Dosage: UNK
     Route: 058

REACTIONS (3)
  - Illness [Unknown]
  - Arthralgia [Unknown]
  - Product dose omission issue [Unknown]
